FAERS Safety Report 10038231 (Version 1)
Quarter: 2014Q1

REPORT INFORMATION
  Report Type: Spontaneous
  Country: US (occurrence: None)
  Receive Date: 20140325
  Receipt Date: 20140325
  Transmission Date: 20141002
  Serious: Yes (Disabling)
  Sender: FDA-Public Use
  Company Number: None

PATIENT
  Age: 57 Year
  Sex: Female
  Weight: 106.6 kg

DRUGS (1)
  1. DOXYCYCLINE [Suspect]
     Indication: INFLUENZA
     Dosage: 2 PILLS, TWICE DAILY, ORAL
     Route: 048
     Dates: start: 20121010, end: 20121020

REACTIONS (4)
  - Weight decreased [None]
  - Aphagia [None]
  - Anxiety [None]
  - Parosmia [None]
